FAERS Safety Report 9665624 (Version 1)
Quarter: 2013Q4

REPORT INFORMATION
  Report Type: Spontaneous
  Country: US (occurrence: US)
  Receive Date: 20131104
  Receipt Date: 20131104
  Transmission Date: 20140711
  Serious: No
  Sender: FDA-Public Use
  Company Number: US-ROXANE LABORATORIES, INC.-2013-RO-01775RO

PATIENT
  Age: 70 Year
  Sex: Male

DRUGS (3)
  1. MERCAPTOPURINE [Suspect]
     Indication: COLITIS ULCERATIVE
     Dosage: 50 MG
     Route: 048
     Dates: start: 2012, end: 201310
  2. MERCAPTOPURINE [Suspect]
     Dosage: 25 MG
     Route: 048
     Dates: start: 201310
  3. AVODART [Concomitant]
     Indication: PROSTATOMEGALY

REACTIONS (1)
  - Alopecia [Not Recovered/Not Resolved]
